FAERS Safety Report 7673770-7 (Version None)
Quarter: 2011Q3

REPORT INFORMATION
  Report Type: 
  Country: None (occurrence: None)
  Receive Date: 20110810
  Receipt Date: 20110803
  Transmission Date: 20111222
  Serious: Yes (Hospitalization)
  Sender: FDA-Public Use
  Company Number: JP-ASTELLAS-2011JP005364

PATIENT
  Age: 59 Year
  Sex: Female

DRUGS (12)
  1. PREDNISOLONE [Concomitant]
     Dosage: 5 MG, UNKNOWN/D
     Route: 048
     Dates: start: 20110301
  2. ALLOPURINOL [Concomitant]
     Dosage: 50 MG, UNKNOWN/D
     Route: 048
     Dates: start: 20110701
  3. URSO 250 [Concomitant]
     Dosage: 600 MG, UNKNOWN/D
     Route: 048
     Dates: start: 20110301
  4. LASIX [Concomitant]
     Dosage: 20 MG, UNKNOWN/D
     Route: 048
     Dates: start: 20110715
  5. CELLCEPT [Suspect]
     Dosage: 1000 MG, UNKNOWN/D
     Route: 048
     Dates: start: 20110301
  6. PERSANTIN [Concomitant]
     Dosage: 300 MG, UNKNOWN/D
     Route: 048
     Dates: start: 20110301
  7. RABEPRAZOLE SODIUM [Concomitant]
     Dosage: 10 MG, UNKNOWN/D
     Route: 048
     Dates: start: 20110301
  8. BACTRIM [Concomitant]
     Dosage: 1 G, UNKNOWN/D
     Route: 048
     Dates: start: 20110301
  9. LAC B [Concomitant]
     Dosage: 3 G, UNKNOWN/D
     Route: 048
     Dates: start: 20110601
  10. ENSURE [Concomitant]
     Dosage: 250 ML, UNKNOWN/D
     Route: 048
     Dates: start: 20110615
  11. TACROLIMUS [Suspect]
     Dosage: 6 MG, UNKNOWN/D
     Route: 048
     Dates: start: 20110301
  12. ALDACTONE [Concomitant]
     Dosage: 25 MG, UNKNOWN/D
     Route: 048
     Dates: start: 20110701

REACTIONS (1)
  - RENAL DISORDER [None]
